FAERS Safety Report 10202408 (Version 2)
Quarter: 2014Q2

REPORT INFORMATION
  Report Type: Report from Study
  Country: JP (occurrence: JP)
  Receive Date: 20140528
  Receipt Date: 20140528
  Transmission Date: 20141212
  Serious: Yes (Hospitalization)
  Sender: FDA-Public Use
  Company Number: JP-ABBVIE-12P-087-0993632-00

PATIENT
  Age: 69 Year
  Sex: Male
  Weight: 82.5 kg

DRUGS (3)
  1. CLARITHROMYCIN [Suspect]
     Indication: HELICOBACTER INFECTION
     Route: 048
     Dates: start: 20120815, end: 20120821
  2. VONOPRAZAN [Concomitant]
     Indication: HELICOBACTER INFECTION
     Route: 048
     Dates: start: 20120815, end: 20120821
  3. AMOXICILLIN [Concomitant]
     Indication: HELICOBACTER INFECTION
     Route: 048
     Dates: start: 20120815, end: 20120821

REACTIONS (1)
  - Acute myocardial infarction [Recovering/Resolving]
